FAERS Safety Report 6106075-6 (Version None)
Quarter: 2009Q1

REPORT INFORMATION
  Report Type: 
  Country: None (occurrence: None)
  Receive Date: 20090306
  Receipt Date: 20090306
  Transmission Date: 20090719
  Serious: Yes (Hospitalization)
  Sender: FDA-Public Use
  Company Number: US-PFIZER INC-2009163726

PATIENT
  Sex: Female
  Weight: 79.378 kg

DRUGS (9)
  1. MICRONASE [Suspect]
     Indication: TYPE 2 DIABETES MELLITUS
     Dates: start: 20030101
  2. PREVACID [Concomitant]
     Dosage: UNK
  3. SYNTHROID [Concomitant]
     Dosage: UNK
  4. TOPROL-XL [Concomitant]
     Dosage: UNK
  5. CYMBALTA [Concomitant]
     Dosage: UNK
  6. GLUCOPHAGE [Concomitant]
     Dosage: UNK
  7. ZESTRIL [Concomitant]
     Dosage: UNK
  8. ZOCOR [Concomitant]
     Dosage: UNK
  9. DOXEPIN HYDROCHLORIDE [Concomitant]
     Dosage: UNK

REACTIONS (1)
  - ABDOMINAL OPERATION [None]
